FAERS Safety Report 8599471-9 (Version None)
Quarter: 2012Q3

REPORT INFORMATION
  Report Type: 
  Country: None (occurrence: None)
  Receive Date: 20120808
  Receipt Date: 20120808
  Transmission Date: 20120928
  Serious: Yes (Disabling)
  Sender: FDA-Public Use
  Company Number: None

PATIENT
  Age: 26 Year
  Sex: Male
  Weight: 83.9154 kg

DRUGS (1)
  1. FINASTERIDE [Suspect]
     Indication: HIRSUTISM
     Dosage: 1 MG, 1/DAY, ORAL
     Route: 048
     Dates: start: 20120206, end: 20120209

REACTIONS (25)
  - FALL [None]
  - SEXUAL DYSFUNCTION [None]
  - CHAPPED LIPS [None]
  - SWEAT GLAND DISORDER [None]
  - HYPOAESTHESIA [None]
  - EMOTIONAL DISORDER [None]
  - LIP SWELLING [None]
  - MEMORY IMPAIRMENT [None]
  - FATIGUE [None]
  - BALANCE DISORDER [None]
  - PALPITATIONS [None]
  - IMPAIRED HEALING [None]
  - PRODUCT SUBSTITUTION ISSUE [None]
  - ERECTILE DYSFUNCTION [None]
  - DYSPNOEA [None]
  - DEPRESSION [None]
  - DYSGEUSIA [None]
  - EXCESSIVE MASTURBATION [None]
  - TESTICULAR PAIN [None]
  - ANXIETY [None]
  - CHILLS [None]
  - ALOPECIA [None]
  - TREMOR [None]
  - INSOMNIA [None]
  - DECREASED APPETITE [None]
